FAERS Safety Report 4687641-1 (Version None)
Quarter: 2005Q2

REPORT INFORMATION
  Report Type: 
  Country: None (occurrence: None)
  Receive Date: 20050608
  Receipt Date: 20050608
  Transmission Date: 20051028
  Serious: Yes (Other)
  Sender: FDA-Public Use
  Company Number: None

PATIENT
  Age: 52 Year
  Sex: Female
  Weight: 54.4316 kg

DRUGS (2)
  1. PAXIL [Suspect]
     Indication: ANXIETY
     Dosage: 30MG  X1 DAY   ORAL
     Route: 048
  2. PAXIL [Suspect]
     Indication: DEPRESSION
     Dosage: 30MG  X1 DAY   ORAL
     Route: 048

REACTIONS (4)
  - CRYING [None]
  - HEADACHE [None]
  - NERVOUS SYSTEM DISORDER [None]
  - TREMOR [None]
